FAERS Safety Report 12855876 (Version 1)
Quarter: 2016Q4

REPORT INFORMATION
  Report Type: Spontaneous
  Country: CN (occurrence: None)
  Receive Date: 20161014
  Receipt Date: 20161014
  Transmission Date: 20170207
  Serious: Yes (Life-Threatening, Hospitalization)
  Sender: FDA-Public Use
  Company Number: CN2016K3791LIT

PATIENT
  Age: 28 Year
  Sex: Female
  Weight: 56 kg

DRUGS (1)
  1. ENALAPRIL WORLD (ENALAPRIL) UNKNOWN [Suspect]
     Active Substance: ENALAPRIL
     Indication: SUICIDE ATTEMPT
     Route: 048

REACTIONS (19)
  - Hypotension [None]
  - Respiratory failure [None]
  - Abdominal discomfort [None]
  - Abdominal tenderness [None]
  - Asthenia [None]
  - Pulmonary oedema [None]
  - Haemodialysis [None]
  - Toxicity to various agents [None]
  - Pulse abnormal [None]
  - Blood potassium decreased [None]
  - Vomiting [None]
  - Nausea [None]
  - Intentional overdose [None]
  - Pleural effusion [None]
  - Metabolic acidosis [None]
  - Suicide attempt [None]
  - Renal impairment [None]
  - Dizziness [None]
  - Lethargy [None]
